FAERS Safety Report 5294668-8 (Version None)
Quarter: 2007Q2

REPORT INFORMATION
  Report Type: 
  Country: None (occurrence: None)
  Receive Date: 20070412
  Receipt Date: 20070330
  Transmission Date: 20071010
  Serious: Yes (Death)
  Sender: FDA-Public Use
  Company Number: SE-NOVOPROD-262405

PATIENT
  Age: 88 Year
  Sex: Male

DRUGS (1)
  1. NORDITROPIN SIMPLEXX [Suspect]
     Dates: start: 20000217, end: 20060130

REACTIONS (1)
  - DEATH [None]
